FAERS Safety Report 24100560 (Version 1)
Quarter: 2024Q3

REPORT INFORMATION
  Report Type: Spontaneous
  Country: US (occurrence: US)
  Receive Date: 20240717
  Receipt Date: 20240717
  Transmission Date: 20241017
  Serious: No
  Sender: NOVO NORDISK
  Company Number: US-NOVOPROD-1205382

PATIENT

DRUGS (1)
  1. OZEMPIC [Suspect]
     Active Substance: SEMAGLUTIDE
     Indication: Product used for unknown indication
     Dosage: 1 MG
     Route: 058
     Dates: start: 202306

REACTIONS (5)
  - Dry mouth [Unknown]
  - Abdominal pain upper [Unknown]
  - Accidental overdose [Unknown]
  - Off label use [Unknown]
  - Product label confusion [Unknown]

NARRATIVE: CASE EVENT DATE: 20230601
